FAERS Safety Report 9000652 (Version 1)
Quarter: 2012Q4

REPORT INFORMATION
  Report Type: Spontaneous
  Country: SI (occurrence: None)
  Receive Date: 20121226
  Receipt Date: 20121226
  Transmission Date: 20130627
  Serious: Yes (Other)
  Sender: FDA-Public Use
  Company Number: DSA_61479_2012

PATIENT
  Age: 80 Year
  Sex: Female

DRUGS (6)
  1. WELLBUTRIN [Suspect]
     Indication: DEPRESSION
     Dates: start: 201209
  2. MIRTAZAPINE [Concomitant]
  3. TRAVATAN [Concomitant]
  4. SAFLUTAN [Concomitant]
  5. MAXITROL [Concomitant]
  6. NEBILET [Concomitant]

REACTIONS (5)
  - Glaucoma [None]
  - Condition aggravated [None]
  - Eye pruritus [None]
  - Eye irritation [None]
  - Eyelid oedema [None]
